FAERS Safety Report 8317896-3 (Version None)
Quarter: 2012Q2

REPORT INFORMATION
  Report Type: 
  Country: None (occurrence: None)
  Receive Date: 20120427
  Receipt Date: 20120419
  Transmission Date: 20120825
  Serious: Yes (Other)
  Sender: FDA-Public Use
  Company Number: US-JNJFOC-20120410467

PATIENT
  Sex: Female
  Weight: 59.88 kg

DRUGS (2)
  1. ORTHO-CEPT [Suspect]
     Route: 048
  2. ORTHO-CEPT [Suspect]
     Indication: PROPHYLAXIS
     Route: 048
     Dates: start: 20120301, end: 20120301

REACTIONS (7)
  - OFF LABEL USE [None]
  - UTERINE LEIOMYOMA [None]
  - NEOPLASM MALIGNANT [None]
  - SMEAR CERVIX ABNORMAL [None]
  - MULTIPLE SCLEROSIS [None]
  - UTERINE HAEMORRHAGE [None]
  - ABNORMAL LOSS OF WEIGHT [None]
